FAERS Safety Report 13689642 (Version 2)
Quarter: 2017Q3

REPORT INFORMATION
  Report Type: Spontaneous
  Country: US (occurrence: US)
  Receive Date: 20170626
  Receipt Date: 20170725
  Transmission Date: 20171127
  Serious: Yes (Other)
  Sender: FDA-Public Use
  Company Number: US-INDIVIOR LIMITED-INDV-102790-2017

PATIENT
  Sex: Female

DRUGS (2)
  1. SUBOXONE [Suspect]
     Active Substance: BUPRENORPHINE HYDROCHLORIDE\NALOXONE HYDROCHLORIDE
     Indication: DRUG USE DISORDER
     Dosage: 4MG QD, BY CUTTING
     Route: 065
     Dates: start: 2015
  2. SUBOXONE [Suspect]
     Active Substance: BUPRENORPHINE HYDROCHLORIDE\NALOXONE HYDROCHLORIDE
     Dosage: 4MG, QD BY CUTTING
     Route: 065
     Dates: start: 20170612

REACTIONS (14)
  - Hallucination, visual [Unknown]
  - Product preparation error [Unknown]
  - Anxiety [Unknown]
  - Abnormal dreams [Unknown]
  - Thinking abnormal [Unknown]
  - Sleep paralysis [Unknown]
  - Palpitations [Unknown]
  - Hallucination, auditory [Unknown]
  - Somnolence [Unknown]
  - Sleep terror [Unknown]
  - Feeling abnormal [Unknown]
  - Confusional state [Unknown]
  - Stress [Unknown]
  - Drug effect increased [Unknown]

NARRATIVE: CASE EVENT DATE: 2015
